FAERS Safety Report 13373505 (Version 1)
Quarter: 2017Q1

REPORT INFORMATION
  Report Type: Spontaneous
  Country: FI (occurrence: FI)
  Receive Date: 20170327
  Receipt Date: 20170327
  Transmission Date: 20170429
  Serious: Yes (Other)
  Sender: FDA-Public Use
  Company Number: FI-MEDA-2017010120

PATIENT
  Age: 62 Year
  Sex: Male

DRUGS (3)
  1. DYMISTA [Suspect]
     Active Substance: AZELASTINE HYDROCHLORIDE\FLUTICASONE PROPIONATE
     Route: 045
  2. MULTAQ [Suspect]
     Active Substance: DRONEDARONE
     Indication: ARRHYTHMIA
  3. TAMBOCOR [Concomitant]
     Active Substance: FLECAINIDE ACETATE

REACTIONS (1)
  - Ventricular fibrillation [Unknown]

NARRATIVE: CASE EVENT DATE: 201701
